FAERS Safety Report 8129889-X (Version None)
Quarter: 2011Q4

REPORT INFORMATION
  Report Type: 
  Country: None (occurrence: None)
  Receive Date: 20111227
  Receipt Date: 20110830
  Transmission Date: 20120403
  Serious: No
  Sender: FDA-Public Use
  Company Number: PHEH2011US01337

PATIENT
  Age: 48 Year
  Sex: Female

DRUGS (5)
  1. GILENYA [Suspect]
     Indication: MULTIPLE SCLEROSIS
     Dosage: 0.5 MG, DAILY, ORAL
     Route: 048
     Dates: start: 20110621, end: 20110809
  2. KLONOPIN [Concomitant]
  3. WELLBUTRIN HYDROCHLORIDE) /00700502/ (BUPROPION [Concomitant]
  4. DETROL [Concomitant]
  5. TIZANIDINE HCL [Concomitant]

REACTIONS (2)
  - DIARRHOEA [None]
  - NAUSEA [None]
